FAERS Safety Report 7341345-5 (Version None)
Quarter: 2011Q1

REPORT INFORMATION
  Report Type: 
  Country: None (occurrence: None)
  Receive Date: 20110309
  Receipt Date: 20110225
  Transmission Date: 20110831
  Serious: Yes (Hospitalization)
  Sender: FDA-Public Use
  Company Number: IR-WATSON-2011-02731

PATIENT
  Age: 22 Year
  Sex: Female

DRUGS (1)
  1. CABERGOLINE [Suspect]
     Indication: GALACTORRHOEA
     Dosage: 0.5 MG, 1/WEEK
     Route: 048

REACTIONS (1)
  - ANGLE CLOSURE GLAUCOMA [None]
